FAERS Safety Report 19194234 (Version 1)
Quarter: 2021Q2

REPORT INFORMATION
  Report Type: Spontaneous
  Country: BR (occurrence: BR)
  Receive Date: 20210429
  Receipt Date: 20210429
  Transmission Date: 20210717
  Serious: Yes (Hospitalization, Other)
  Sender: FDA-Public Use
  Company Number: BR-009507513-2104BRA006195

PATIENT
  Age: 70 Year
  Sex: Female
  Weight: 117 kg

DRUGS (1)
  1. TEMODAL [Suspect]
     Active Substance: TEMOZOLOMIDE
     Indication: BRAIN NEOPLASM
     Dosage: 250MG AND 20MG DOSAGE FORMS, 290 MG FOR 5 DAYS, THEN 28 DAYS OFF
     Route: 048
     Dates: start: 202101

REACTIONS (4)
  - Ovarian neoplasm [Not Recovered/Not Resolved]
  - Post procedural pulmonary embolism [Not Recovered/Not Resolved]
  - Product use issue [Unknown]
  - Adverse event [Not Recovered/Not Resolved]

NARRATIVE: CASE EVENT DATE: 2021
